FAERS Safety Report 7186592-0 (Version None)
Quarter: 2010Q4

REPORT INFORMATION
  Report Type: 
  Country: None (occurrence: None)
  Receive Date: 20101222
  Receipt Date: 20101215
  Transmission Date: 20110411
  Serious: Yes (Other)
  Sender: FDA-Public Use
  Company Number: FR-GILEAD-2010-0034537

PATIENT
  Sex: Female
  Weight: 65 kg

DRUGS (8)
  1. TRUVADA [Suspect]
     Indication: HIV INFECTION
     Dates: end: 20101001
  2. KALETRA [Concomitant]
     Dates: end: 20101001
  3. COMBIVIR [Concomitant]
     Dates: start: 20101001
  4. TELZIR [Concomitant]
     Dates: start: 20101001
  5. NORVIR [Concomitant]
     Dates: start: 20101001
  6. VIRAMUNE [Concomitant]
  7. FUZEON [Concomitant]
  8. AZT [Concomitant]

REACTIONS (3)
  - PRE-ECLAMPSIA [None]
  - PREGNANCY [None]
  - PREMATURE LABOUR [None]
